FAERS Safety Report 14583557 (Version 1)
Quarter: 2018Q1

REPORT INFORMATION
  Report Type: Spontaneous
  Country: US (occurrence: US)
  Receive Date: 20180227
  Receipt Date: 20180227
  Transmission Date: 20180509
  Serious: Yes (Hospitalization, Other)
  Sender: FDA-Public Use
  Company Number: None

PATIENT
  Age: 40 Year
  Sex: Male
  Weight: 94.5 kg

DRUGS (2)
  1. SUBOXONE [Suspect]
     Active Substance: BUPRENORPHINE HYDROCHLORIDE\NALOXONE HYDROCHLORIDE
     Indication: BRAIN INJURY
     Dosage: 2 2 FILMS ONGOING; SUBLINGUAL?
     Route: 060
     Dates: start: 20120103, end: 20180227
  2. SUBOXONE [Suspect]
     Active Substance: BUPRENORPHINE HYDROCHLORIDE\NALOXONE HYDROCHLORIDE
     Indication: VISUAL IMPAIRMENT
     Dosage: 2 2 FILMS ONGOING; SUBLINGUAL?
     Route: 060
     Dates: start: 20120103, end: 20180227

REACTIONS (7)
  - Hallucination, visual [None]
  - Stress [None]
  - Withdrawal syndrome [None]
  - Drug ineffective [None]
  - Alopecia [None]
  - Emotional distress [None]
  - Product quality issue [None]

NARRATIVE: CASE EVENT DATE: 20140512
